FAERS Safety Report 24923794 (Version 1)
Quarter: 2025Q1

REPORT INFORMATION
  Report Type: Spontaneous
  Country: US (occurrence: US)
  Receive Date: 20250204
  Receipt Date: 20250204
  Transmission Date: 20250409
  Serious: No
  Sender: BRISTOL-MYERS SQUIBB COMPANY
  Company Number: US-BRISTOL-MYERS SQUIBB COMPANY-2025-016781

PATIENT
  Age: 67 Year
  Sex: Male
  Weight: 98.43 kg

DRUGS (1)
  1. ONUREG [Suspect]
     Active Substance: AZACITIDINE
     Indication: Acute monocytic leukaemia
     Route: 048

REACTIONS (1)
  - Nausea [Recovering/Resolving]
